FAERS Safety Report 11963987 (Version 1)
Quarter: 2016Q1

REPORT INFORMATION
  Report Type: Report from Study
  Country: US (occurrence: US)
  Receive Date: 20160126
  Receipt Date: 20160126
  Transmission Date: 20160526
  Serious: No
  Sender: FDA-Public Use
  Company Number: US-ABBVIE-15K-163-1378159-00

PATIENT
  Sex: Female

DRUGS (1)
  1. HUMIRA [Suspect]
     Active Substance: ADALIMUMAB
     Indication: PSORIASIS
     Route: 065
     Dates: start: 20150312, end: 20150415

REACTIONS (9)
  - Abdominal pain upper [Unknown]
  - Weight increased [Unknown]
  - Sinus congestion [Unknown]
  - Drug ineffective [Unknown]
  - Rhinorrhoea [Unknown]
  - Psoriasis [Unknown]
  - Headache [Unknown]
  - Muscle spasms [Unknown]
  - Depression [Unknown]

NARRATIVE: CASE EVENT DATE: 2015
